FAERS Safety Report 5201957-1 (Version None)
Quarter: 2007Q1

REPORT INFORMATION
  Report Type: 
  Country: None (occurrence: None)
  Receive Date: 20070104
  Receipt Date: 20070104
  Transmission Date: 20070707
  Serious: No
  Sender: FDA-Public Use
  Company Number: None

PATIENT
  Age: 53 Year
  Sex: Male

DRUGS (16)
  1. CEFEPIME [Suspect]
  2. DOCUSATE/SENNA [Concomitant]
  3. COMBIVENT [Concomitant]
  4. INSULIN ASPART [Concomitant]
  5. INSULIN GLARGINE [Concomitant]
  6. OXYCODONE HCL [Concomitant]
  7. DARBEPOETIN [Concomitant]
  8. ALLOPURINOL SODIUM [Concomitant]
  9. ACETAMINOPHEN [Concomitant]
  10. QUETIAPINE FUMARATE [Concomitant]
  11. DOLASETRON PRN [Concomitant]
  12. LACTULOSE PRN [Concomitant]
  13. HEPARIN [Concomitant]
  14. POLYETHYLENE GLYCOL [Concomitant]
  15. GABAPETIN [Concomitant]
  16. FERROUS SULFATE TAB [Concomitant]

REACTIONS (4)
  - DEPRESSED LEVEL OF CONSCIOUSNESS [None]
  - MENTAL STATUS CHANGES [None]
  - MUSCLE TWITCHING [None]
  - SEDATION [None]
